FAERS Safety Report 22880203 (Version 4)
Quarter: 2023Q4

REPORT INFORMATION
  Report Type: Spontaneous
  Country: AU (occurrence: AU)
  Receive Date: 20230829
  Receipt Date: 20231006
  Transmission Date: 20240109
  Serious: Yes (Hospitalization, Other)
  Sender: FDA-Public Use
  Company Number: AU-PFIZER INC-PV202300145377

PATIENT
  Sex: Male

DRUGS (1)
  1. XYNTHA [Suspect]
     Active Substance: ANTIHEMOPHILIC FACTOR, HUMAN RECOMBINANT RESIDUES 743-1636 DELETED
     Dosage: UNK
     Dates: start: 202305

REACTIONS (4)
  - Haemarthrosis [Unknown]
  - Haemorrhage [Unknown]
  - Muscle haemorrhage [Unknown]
  - Weight increased [Unknown]
